FAERS Safety Report 16062770 (Version 1)
Quarter: 2019Q1

REPORT INFORMATION
  Report Type: Spontaneous
  Country: US (occurrence: US)
  Receive Date: 20190213
  Receipt Date: 20190213
  Transmission Date: 20190418
  Serious: No
  Sender: FDA-Public Use
  Company Number: None

PATIENT
  Age: 81 Year
  Sex: Female

DRUGS (1)
  1. IBRANCE [Suspect]
     Active Substance: PALBOCICLIB
     Dates: start: 20190210

REACTIONS (4)
  - Fatigue [None]
  - Confusional state [None]
  - Therapy cessation [None]
  - Anaemia [None]

NARRATIVE: CASE EVENT DATE: 20190206
